FAERS Safety Report 4717261-1 (Version None)
Quarter: 2005Q3

REPORT INFORMATION
  Report Type: 
  Country: None (occurrence: None)
  Receive Date: 20050715
  Receipt Date: 20050704
  Transmission Date: 20060218
  Serious: Yes (Death)
  Sender: FDA-Public Use
  Company Number: 2005-DE-02551GD

PATIENT
  Age: 30 Year
  Sex: Female

DRUGS (3)
  1. FUROSEMIDE (FUROSEMIDE) [Suspect]
     Indication: PULMONARY HYPERTENSION
  2. DOBUTAMINE (DOBUTAMINE) [Suspect]
     Indication: PULMONARY HYPERTENSION
  3. EPOPROSTENOL (EPOPROSTENOL) [Concomitant]
     Indication: PULMONARY HYPERTENSION

REACTIONS (4)
  - DRUG EXPOSURE DURING PREGNANCY [None]
  - GENERAL PHYSICAL HEALTH DETERIORATION [None]
  - LABOUR INDUCTION [None]
  - PREMATURE BABY [None]
